FAERS Safety Report 6416318-7 (Version None)
Quarter: 2009Q4

REPORT INFORMATION
  Report Type: 
  Country: None (occurrence: None)
  Receive Date: 20091027
  Receipt Date: 20091021
  Transmission Date: 20100525
  Serious: Yes (Other)
  Sender: FDA-Public Use
  Company Number: US-SANOFI-SYNTHELABO-A03200904893

PATIENT
  Sex: Male

DRUGS (2)
  1. ELIGARD [Suspect]
     Indication: DRUG USE FOR UNKNOWN INDICATION
     Dosage: 45MG EVERY 6 MONTHS
     Route: 058
     Dates: start: 20091016, end: 20091016
  2. COUMADIN [Concomitant]

REACTIONS (2)
  - ABDOMINAL WALL HAEMATOMA [None]
  - DRUG ADMINISTRATION ERROR [None]
